FAERS Safety Report 22963589 (Version 3)
Quarter: 2023Q4

REPORT INFORMATION
  Report Type: Spontaneous
  Country: ES (occurrence: ES)
  Receive Date: 20230921
  Receipt Date: 20231009
  Transmission Date: 20240109
  Serious: No
  Sender: FDA-Public Use
  Company Number: ES-REIGJOFR-202300677

PATIENT
  Age: 79 Year
  Sex: Male

DRUGS (7)
  1. DAPTOMYCIN [Suspect]
     Active Substance: DAPTOMYCIN
     Indication: Staphylococcus test positive
     Dosage: UNK
  2. DAPTOMYCIN [Suspect]
     Active Substance: DAPTOMYCIN
     Indication: Endocarditis
     Dosage: 10MG/KG/DAY
  3. DAPTOMYCIN [Suspect]
     Active Substance: DAPTOMYCIN
     Dosage: 700MG/48H
  4. CEFTAROLINE [Concomitant]
     Active Substance: CEFTAROLINE
     Indication: Endocarditis
     Dosage: 300MG/8H
  5. CEFTAROLINE [Concomitant]
     Active Substance: CEFTAROLINE
     Dosage: 400MG/8H
  6. CEFTAROLINE [Concomitant]
     Active Substance: CEFTAROLINE
     Dosage: 600MG/8H
  7. CLOXACILLIN [Concomitant]
     Active Substance: CLOXACILLIN
     Indication: Staphylococcus test positive
     Dosage: UNK

REACTIONS (1)
  - Incorrect dose administered [Unknown]
